FAERS Safety Report 7498993-1 (Version None)
Quarter: 2011Q2

REPORT INFORMATION
  Report Type: 
  Country: None (occurrence: None)
  Receive Date: 20110524
  Receipt Date: 20110124
  Transmission Date: 20111010
  Serious: Yes (Hospitalization, Other)
  Sender: FDA-Public Use
  Company Number: US-BAYER-201039746NA

PATIENT
  Age: 37 Year
  Sex: Female
  Weight: 176.87 kg

DRUGS (16)
  1. LISINOPRIL [Concomitant]
     Indication: HYPERTENSION
     Dosage: 20/25MG
     Dates: start: 20080101
  2. MEDROXYPROGESTERONE [Concomitant]
  3. PROMETHAZINE [Concomitant]
  4. LORATADINE [Concomitant]
  5. AMOXICILLIN [Concomitant]
     Dosage: UNK
     Dates: start: 20081101
  6. CIMETIDINE [Concomitant]
     Indication: GASTRITIS
     Dosage: 400 MG, QD
     Dates: start: 20090101
  7. DICYCLOMINE [Concomitant]
     Indication: GASTRITIS
     Dosage: 10 MG, QD
     Dates: start: 20090101
  8. INDOMETHACIN [Concomitant]
  9. YAZ [Suspect]
     Indication: PRODUCT USED FOR UNKNOWN INDICATION
     Route: 048
     Dates: start: 20081201, end: 20090201
  10. AZITROMYCINE MERCK [Concomitant]
  11. TETRACYCLINE [Concomitant]
     Dosage: UNK
     Dates: start: 20081101
  12. METFORMIN HCL [Concomitant]
     Dosage: UNK
     Dates: start: 20081201
  13. IBUPROFEN [Concomitant]
     Dosage: UNK
     Dates: start: 20090101
  14. RANITIDINE [Concomitant]
  15. ALLOPURINOL [Concomitant]
     Indication: GOUT
     Dosage: UNK
     Dates: start: 20090101
  16. CIPRODEX [CIPROFLOXACIN,DEXAMETHASONE] [Concomitant]

REACTIONS (3)
  - CHOLECYSTITIS CHRONIC [None]
  - CHOLELITHIASIS [None]
  - GALLBLADDER DISORDER [None]
